FAERS Safety Report 21943536 (Version 1)
Quarter: 2023Q1

REPORT INFORMATION
  Report Type: Spontaneous
  Country: JP (occurrence: JP)
  Receive Date: 20230202
  Receipt Date: 20230202
  Transmission Date: 20230418
  Serious: Yes (Other)
  Sender: FDA-Public Use
  Company Number: JP-BRISTOL-MYERS SQUIBB COMPANY-2022-153759

PATIENT
  Age: 72 Year
  Sex: Male

DRUGS (12)
  1. REVLIMID [Suspect]
     Active Substance: LENALIDOMIDE
     Indication: Follicular lymphoma
     Route: 048
     Dates: start: 20220406, end: 20220426
  2. REVLIMID [Suspect]
     Active Substance: LENALIDOMIDE
     Route: 048
     Dates: start: 20220510, end: 20220530
  3. REVLIMID [Suspect]
     Active Substance: LENALIDOMIDE
     Route: 048
     Dates: start: 20220607, end: 20220627
  4. REVLIMID [Suspect]
     Active Substance: LENALIDOMIDE
     Route: 048
     Dates: start: 20220705, end: 20220725
  5. RITUXIMAB [Suspect]
     Active Substance: RITUXIMAB
     Indication: Follicular lymphoma
     Dates: start: 20220406, end: 20220406
  6. RITUXIMAB [Suspect]
     Active Substance: RITUXIMAB
     Dates: start: 20220413, end: 20220413
  7. RITUXIMAB [Suspect]
     Active Substance: RITUXIMAB
     Dates: start: 20220421, end: 20220421
  8. RITUXIMAB [Suspect]
     Active Substance: RITUXIMAB
     Dates: start: 20220428, end: 20220428
  9. RITUXIMAB [Suspect]
     Active Substance: RITUXIMAB
     Dates: start: 20220509, end: 20220509
  10. RITUXIMAB [Suspect]
     Active Substance: RITUXIMAB
     Dates: start: 20220606, end: 20220606
  11. RITUXIMAB [Suspect]
     Active Substance: RITUXIMAB
     Dates: start: 20220704, end: 20220704
  12. RITUXIMAB [Suspect]
     Active Substance: RITUXIMAB
     Dates: start: 20220801, end: 20220801

REACTIONS (2)
  - Decreased appetite [Unknown]
  - Gastrointestinal neoplasm [Unknown]

NARRATIVE: CASE EVENT DATE: 20220725
